FAERS Safety Report 25515033 (Version 1)
Quarter: 2025Q3

REPORT INFORMATION
  Report Type: Spontaneous
  Country: US (occurrence: US)
  Receive Date: 20250703
  Receipt Date: 20250703
  Transmission Date: 20251021
  Serious: No
  Sender: BAUSCH AND LOMB
  Company Number: US-BAUSCHBL-2025BNL011208

PATIENT
  Sex: Male

DRUGS (5)
  1. PROLENSA [Suspect]
     Active Substance: BROMFENAC SODIUM
     Indication: Diabetic retinopathy
     Route: 047
     Dates: start: 20250225, end: 20250519
  2. PROLENSA [Suspect]
     Active Substance: BROMFENAC SODIUM
     Indication: Eye swelling
  3. PROLENSA [Suspect]
     Active Substance: BROMFENAC SODIUM
     Indication: Product use in unapproved indication
  4. BROMFENAC [Suspect]
     Active Substance: BROMFENAC
     Indication: Product used for unknown indication
     Route: 047
  5. BROMFENAC [Suspect]
     Active Substance: BROMFENAC

REACTIONS (5)
  - Drug ineffective [Unknown]
  - Off label use [Unknown]
  - Therapy interrupted [Unknown]
  - Insurance issue [Unknown]
  - Product substitution issue [Unknown]

NARRATIVE: CASE EVENT DATE: 20250101
